FAERS Safety Report 6283058-7 (Version None)
Quarter: 2009Q3

REPORT INFORMATION
  Report Type: 
  Country: None (occurrence: None)
  Receive Date: 20090724
  Receipt Date: 20090713
  Transmission Date: 20100115
  Serious: Yes (Other)
  Sender: FDA-Public Use
  Company Number: US-PFIZER INC-2009240269

PATIENT
  Sex: Male

DRUGS (1)
  1. PHENYTOIN SODIUM AND PHENYTOIN [Suspect]

REACTIONS (9)
  - BONE PAIN [None]
  - CONVULSION [None]
  - DIZZINESS [None]
  - HEADACHE [None]
  - INFLUENZA LIKE ILLNESS [None]
  - MOOD SWINGS [None]
  - NERVOUSNESS [None]
  - SOMNOLENCE [None]
  - TREMOR [None]
